FAERS Safety Report 11755993 (Version 1)
Quarter: 2015Q4

REPORT INFORMATION
  Report Type: Spontaneous
  Country: US (occurrence: US)
  Receive Date: 20151119
  Receipt Date: 20151119
  Transmission Date: 20160304
  Serious: No
  Sender: FDA-Public Use
  Company Number: US-ALLERGAN-1512081US

PATIENT
  Sex: Female

DRUGS (19)
  1. GLUCOSAMINE + CHONDROITIN [Concomitant]
     Indication: ARTHRALGIA
     Dosage: 2 DF, QD
  2. ZINC OXIDE. [Concomitant]
     Active Substance: ZINC OXIDE
     Indication: RASH
  3. ALPHAGAN P [Suspect]
     Active Substance: BRIMONIDINE TARTRATE
     Indication: GLAUCOMA
     Dosage: 2 GTT, BID
     Route: 047
     Dates: end: 20150601
  4. AMBIEN [Concomitant]
     Active Substance: ZOLPIDEM TARTRATE
     Dosage: 5 MG, QHS
  5. ZYRTEC [Concomitant]
     Active Substance: CETIRIZINE HYDROCHLORIDE
     Dosage: 1 DF, QHS
     Route: 048
  6. METFORMIN [Concomitant]
     Active Substance: METFORMIN HYDROCHLORIDE
     Indication: DIABETES MELLITUS
     Dosage: 1000 MG, BID
  7. NYSTATIN AND TRIAMCINOLONE [Concomitant]
     Active Substance: NYSTATIN\TRIAMCINOLONE ACETONIDE
     Indication: FUNGAL INFECTION
     Dosage: UNK UNK, PRN
  8. ZANTAC [Concomitant]
     Active Substance: RANITIDINE HYDROCHLORIDE
     Dosage: 150 MG, QHS
  9. MUCINEX [Concomitant]
     Active Substance: GUAIFENESIN
     Dosage: 1 DF, QD
     Route: 048
     Dates: start: 201402, end: 201406
  10. LUMIGAN [Concomitant]
     Active Substance: BIMATOPROST
     Indication: PRODUCT USED FOR UNKNOWN INDICATION
  11. LISINOPRIL. [Concomitant]
     Active Substance: LISINOPRIL
     Dosage: 10 MG, QHS
     Dates: start: 201210
  12. OCUVITE [Concomitant]
     Active Substance: VITAMINS
     Dosage: 1 DF, QD
     Dates: start: 201211
  13. ZINC OXIDE. [Concomitant]
     Active Substance: ZINC OXIDE
     Indication: ECZEMA
     Dosage: UNK UNK, PRN
     Route: 061
     Dates: start: 201403
  14. MUCINEX [Concomitant]
     Active Substance: GUAIFENESIN
     Dosage: 1 DF, QD
     Route: 048
     Dates: start: 20130101, end: 20130330
  15. ECA [Concomitant]
     Dosage: UNK UNK, QOD
     Route: 048
     Dates: start: 2012, end: 20150504
  16. BYDUREON [Concomitant]
     Active Substance: EXENATIDE
     Dosage: UNK UNK, Q WEEK
     Dates: start: 201406
  17. BETHA [Concomitant]
     Indication: SEBORRHOEA
     Dosage: UNK UNK, QD
     Route: 061
     Dates: start: 2003
  18. PROTONIX [Concomitant]
     Active Substance: PANTOPRAZOLE SODIUM
     Dosage: 40 MG, QD
     Route: 048
     Dates: start: 200301
  19. BENADRYL [Concomitant]
     Active Substance: DIPHENHYDRAMINE HYDROCHLORIDE
     Dosage: 50 MG, QHS

REACTIONS (2)
  - Drug ineffective [Unknown]
  - Intraocular pressure increased [Unknown]
